FAERS Safety Report 11273226 (Version 2)
Quarter: 2015Q4

REPORT INFORMATION
  Report Type: Spontaneous
  Country: US (occurrence: US)
  Receive Date: 20150715
  Receipt Date: 20151211
  Transmission Date: 20160304
  Serious: No
  Sender: FDA-Public Use
  Company Number: US-PFIZER INC-2015231502

PATIENT
  Age: 69 Year
  Sex: Male
  Weight: 68 kg

DRUGS (1)
  1. SUTENT [Suspect]
     Active Substance: SUNITINIB MALATE
     Indication: RENAL CANCER
     Dosage: 50 MG, 1X/DAY
     Dates: start: 2015

REACTIONS (5)
  - Disease progression [Unknown]
  - Oral pain [Unknown]
  - Glossodynia [Unknown]
  - Blood pressure increased [Unknown]
  - Renal cancer [Unknown]

NARRATIVE: CASE EVENT DATE: 201507
